FAERS Safety Report 10160576 (Version 1)
Quarter: 2014Q2

REPORT INFORMATION
  Report Type: Report from Study
  Country: US (occurrence: US)
  Receive Date: 20140508
  Receipt Date: 20140508
  Transmission Date: 20141212
  Serious: Yes (Hospitalization, Other)
  Sender: FDA-Public Use
  Company Number: US-ABBVIE-14P-163-1231157-00

PATIENT
  Age: 56 Year
  Sex: Female
  Weight: 69.46 kg

DRUGS (7)
  1. HUMIRA [Suspect]
     Indication: ARTHRITIS REACTIVE
     Route: 058
     Dates: start: 200804, end: 201402
  2. HUMIRA [Suspect]
     Route: 058
     Dates: start: 20140326
  3. CELEBREX [Suspect]
     Indication: ARTHRITIS REACTIVE
  4. METHOTREXATE [Suspect]
     Indication: ARTHRITIS REACTIVE
     Dates: end: 201310
  5. UNNAMED ANTIINFLAMMATORY DRUGS [Suspect]
     Indication: ARTHRITIS REACTIVE
  6. NEURONTIN [Concomitant]
     Indication: FIBROMYALGIA
  7. ALDACTONE [Concomitant]
     Indication: ALOPECIA

REACTIONS (16)
  - Deafness [Recovered/Resolved]
  - Arthritis [Recovering/Resolving]
  - Fall [Recovered/Resolved]
  - Joint swelling [Recovering/Resolving]
  - Arthralgia [Recovering/Resolving]
  - Duodenal ulcer [Recovered/Resolved]
  - Ear pain [Recovering/Resolving]
  - Ear infection [Recovering/Resolving]
  - Otorrhoea [Unknown]
  - Ear canal erythema [Unknown]
  - Ear swelling [Unknown]
  - Middle ear effusion [Not Recovered/Not Resolved]
  - Headache [Recovering/Resolving]
  - Facial pain [Recovering/Resolving]
  - Tympanic membrane disorder [Unknown]
  - Hepatic enzyme increased [Recovered/Resolved]
